FAERS Safety Report 12522306 (Version 16)
Quarter: 2020Q3

REPORT INFORMATION
  Report Type: Report from Study
  Country: NZ (occurrence: NZ)
  Receive Date: 20160701
  Receipt Date: 20180312
  Transmission Date: 20201105
  Serious: Yes (Life-Threatening, Hospitalization, Other)
  Sender: FDA-Public Use
  Company Number: NZ-JNJFOC-20160625031

PATIENT
  Age: 58 Year
  Sex: Male
  Weight: 112 kg

DRUGS (31)
  1. PREDNISONE. [Concomitant]
     Active Substance: PREDNISONE
     Indication: CARDIOMYOPATHY
     Route: 048
     Dates: start: 20160930, end: 20161031
  2. CANAGLIFLOZIN [Suspect]
     Active Substance: CANAGLIFLOZIN
     Indication: DIABETIC NEPHROPATHY
     Route: 048
     Dates: end: 20171110
  3. ASPIRIN. [Concomitant]
     Active Substance: ASPIRIN
     Indication: PROPHYLAXIS
     Route: 048
     Dates: start: 2006
  4. OMEPRAZOLE. [Concomitant]
     Active Substance: OMEPRAZOLE
     Indication: GASTROOESOPHAGEAL REFLUX DISEASE
     Route: 048
     Dates: start: 2014
  5. LANTUS [Concomitant]
     Active Substance: INSULIN GLARGINE
     Indication: TYPE 2 DIABETES MELLITUS
     Route: 058
     Dates: start: 20170723, end: 20170725
  6. INSULIN GLULISINE [Concomitant]
     Active Substance: INSULIN GLULISINE
     Indication: TYPE 2 DIABETES MELLITUS
     Route: 058
     Dates: start: 20160601, end: 20170313
  7. INSULIN GLULISINE [Concomitant]
     Active Substance: INSULIN GLULISINE
     Indication: TYPE 2 DIABETES MELLITUS
     Route: 058
     Dates: start: 20170313, end: 20170706
  8. PREDNISONE. [Concomitant]
     Active Substance: PREDNISONE
     Indication: CARDIOMYOPATHY
     Route: 048
     Dates: start: 20171025, end: 20171115
  9. CANAGLIFLOZIN [Suspect]
     Active Substance: CANAGLIFLOZIN
     Indication: TYPE 2 DIABETES MELLITUS
     Route: 048
     Dates: start: 20150710, end: 20161016
  10. CANAGLIFLOZIN [Suspect]
     Active Substance: CANAGLIFLOZIN
     Indication: TYPE 2 DIABETES MELLITUS
     Route: 048
     Dates: end: 20171110
  11. LANTUS [Concomitant]
     Active Substance: INSULIN GLARGINE
     Indication: TYPE 2 DIABETES MELLITUS
     Route: 058
     Dates: start: 20160424, end: 20160912
  12. LANTUS [Concomitant]
     Active Substance: INSULIN GLARGINE
     Indication: TYPE 2 DIABETES MELLITUS
     Dosage: DOSING EVERY EVENING
     Route: 058
     Dates: start: 20160912, end: 20170722
  13. PREDNISONE. [Concomitant]
     Active Substance: PREDNISONE
     Indication: CARDIOMYOPATHY
     Route: 048
     Dates: start: 20160524, end: 20160912
  14. BENDROFLUAZIDE [Concomitant]
     Active Substance: BENDROFLUMETHIAZIDE
     Indication: HYPERTENSION
     Route: 048
     Dates: start: 2011, end: 20170920
  15. LANTUS [Concomitant]
     Active Substance: INSULIN GLARGINE
     Indication: TYPE 2 DIABETES MELLITUS
     Route: 058
     Dates: start: 20170725, end: 20171213
  16. LANTUS [Concomitant]
     Active Substance: INSULIN GLARGINE
     Indication: TYPE 2 DIABETES MELLITUS
     Route: 058
     Dates: start: 20171214
  17. INSULIN GLULISINE [Concomitant]
     Active Substance: INSULIN GLULISINE
     Indication: TYPE 2 DIABETES MELLITUS
     Route: 058
     Dates: start: 20170707, end: 20170918
  18. PREDNISONE. [Concomitant]
     Active Substance: PREDNISONE
     Indication: CARDIOMYOPATHY
     Route: 048
     Dates: start: 20171116, end: 20171123
  19. PREDNISONE. [Concomitant]
     Active Substance: PREDNISONE
     Indication: CARDIOMYOPATHY
     Route: 048
     Dates: start: 20171202, end: 20171209
  20. PREDNISONE. [Concomitant]
     Active Substance: PREDNISONE
     Indication: CARDIOMYOPATHY
     Route: 048
     Dates: start: 20171210, end: 20171217
  21. CANAGLIFLOZIN [Suspect]
     Active Substance: CANAGLIFLOZIN
     Indication: DIABETIC NEPHROPATHY
     Route: 048
     Dates: start: 20150710, end: 20161016
  22. LANTUS [Concomitant]
     Active Substance: INSULIN GLARGINE
     Indication: TYPE 2 DIABETES MELLITUS
     Dosage: EVERY EVENING
     Route: 058
     Dates: start: 20160324, end: 20160424
  23. INSULIN GLULISINE [Concomitant]
     Active Substance: INSULIN GLULISINE
     Indication: TYPE 2 DIABETES MELLITUS
     Route: 058
     Dates: start: 20170919
  24. PREDNISONE. [Concomitant]
     Active Substance: PREDNISONE
     Indication: CARDIOMYOPATHY
     Route: 048
     Dates: start: 20171218, end: 20171225
  25. PREDNISONE. [Concomitant]
     Active Substance: PREDNISONE
     Indication: CARDIOMYOPATHY
     Route: 048
     Dates: start: 20171225
  26. ATORVASTATIN [Concomitant]
     Active Substance: ATORVASTATIN
     Indication: DYSLIPIDAEMIA
     Route: 048
     Dates: start: 20170831
  27. PREDNISONE. [Concomitant]
     Active Substance: PREDNISONE
     Indication: CARDIOMYOPATHY
     Dosage: IN MORNING
     Route: 048
     Dates: start: 20160921, end: 20160929
  28. QUINAPRIL. [Concomitant]
     Active Substance: QUINAPRIL
     Indication: HYPERTENSION
     Route: 048
     Dates: start: 2012
  29. ATORVASTATIN [Concomitant]
     Active Substance: ATORVASTATIN
     Indication: DYSLIPIDAEMIA
     Route: 048
     Dates: start: 2011, end: 20170830
  30. METFORMIN [Concomitant]
     Active Substance: METFORMIN HYDROCHLORIDE
     Indication: TYPE 2 DIABETES MELLITUS
     Dosage: IN MORNING
     Route: 048
     Dates: start: 20160330
  31. PREDNISONE. [Concomitant]
     Active Substance: PREDNISONE
     Indication: CARDIOMYOPATHY
     Route: 048
     Dates: start: 20171124, end: 20171201

REACTIONS (5)
  - Diabetic foot [Recovered/Resolved]
  - Osteomyelitis [Recovered/Resolved]
  - Anaphylactic reaction [Recovered/Resolved]
  - Cellulitis [Recovered/Resolved]
  - Diabetic foot [Not Recovered/Not Resolved]

NARRATIVE: CASE EVENT DATE: 20160611
